FAERS Safety Report 8323203-2 (Version None)
Quarter: 2012Q2

REPORT INFORMATION
  Report Type: 
  Country: None (occurrence: None)
  Receive Date: 20120430
  Receipt Date: 20120422
  Transmission Date: 20120825
  Serious: Yes (Other)
  Sender: FDA-Public Use
  Company Number: US-ABBOTT-12P-163-0928777-00

PATIENT
  Age: 50 Year
  Sex: Female

DRUGS (13)
  1. ASPIRIN [Concomitant]
     Indication: PRODUCT USED FOR UNKNOWN INDICATION
  2. CLOTRIMAZOLE [Concomitant]
     Indication: FUNGAL INFECTION
     Dosage: TO HANDS AND FEET
  3. PLAVIX [Concomitant]
     Indication: PRODUCT USED FOR UNKNOWN INDICATION
     Dosage: DAILY DOSE: 75MG
  4. HUMIRA [Suspect]
     Indication: RHEUMATOID ARTHRITIS
     Dates: start: 20120316
  5. TEGRETOL [Concomitant]
     Indication: PRODUCT USED FOR UNKNOWN INDICATION
     Dosage: 3 TIMES A DAY 300MG OR MAYBE 200MG
  6. BYSTOLIC [Concomitant]
     Indication: PRODUCT USED FOR UNKNOWN INDICATION
     Dosage: DAILY DOSE: 2.5MG
  7. URISPAS [Concomitant]
     Indication: PRODUCT USED FOR UNKNOWN INDICATION
  8. FUROSEMIDE [Concomitant]
     Indication: PRODUCT USED FOR UNKNOWN INDICATION
  9. DIAZEPAM [Concomitant]
     Indication: PRODUCT USED FOR UNKNOWN INDICATION
  10. RITALIN [Concomitant]
     Indication: PRODUCT USED FOR UNKNOWN INDICATION
     Dosage: DAILY DOSE: 35MG
  11. POTASSIUM CHLORIDE [Concomitant]
     Indication: PRODUCT USED FOR UNKNOWN INDICATION
     Dosage: DAILY DOSE: 20MEQ
  12. BENICAR [Concomitant]
     Indication: PRODUCT USED FOR UNKNOWN INDICATION
  13. LAMISIL [Concomitant]
     Indication: PRODUCT USED FOR UNKNOWN INDICATION
     Dosage: TO HANDS AND FEET

REACTIONS (9)
  - RESPIRATORY DISORDER [None]
  - VITREOUS FLOATERS [None]
  - PAIN IN EXTREMITY [None]
  - MYALGIA [None]
  - CHEST PAIN [None]
  - NECK PAIN [None]
  - MUSCULOSKELETAL STIFFNESS [None]
  - PAIN [None]
  - NECK MASS [None]
